FAERS Safety Report 9384180 (Version 2)
Quarter: 2013Q3

REPORT INFORMATION
  Report Type: Spontaneous
  Country: BR (occurrence: BR)
  Receive Date: 20130705
  Receipt Date: 20130808
  Transmission Date: 20140515
  Serious: Yes (Other)
  Sender: FDA-Public Use
  Company Number: BR-ASTRAZENECA-2013SE49582

PATIENT
  Age: 74 Year
  Sex: Male
  Weight: 78 kg

DRUGS (9)
  1. ATACAND HCT [Suspect]
     Indication: HYPERTENSION
     Dosage: 16/12.5 MG DAILY
     Route: 048
     Dates: start: 2008, end: 201306
  2. ATACAND HCT [Suspect]
     Indication: HYPERTENSION
     Dosage: 16/12.5 MG DAILY
     Route: 048
     Dates: start: 2013, end: 201307
  3. ATACAND HCT [Suspect]
     Indication: HYPERTENSION
     Dosage: 16/12.5 MG ONE MORE DAILY
     Route: 048
     Dates: end: 201307
  4. NAPRIX [Suspect]
     Indication: HYPERTENSION
     Dates: start: 201306, end: 201306
  5. MANIVASC [Suspect]
     Indication: HYPERTENSION
     Dosage: DAILY
     Dates: start: 2008, end: 201306
  6. MANIVASC [Suspect]
     Indication: HYPERTENSION
     Dosage: DAILY
     Dates: start: 2013
  7. MANIVASC [Suspect]
     Indication: HYPERTENSION
     Dosage: ONE MORE DAILY
  8. LAMICTAL [Concomitant]
     Indication: ANXIETY
     Dates: start: 2011
  9. RIVOTRIL [Concomitant]
     Indication: ANXIETY
     Dates: start: 2011

REACTIONS (7)
  - Blood pressure increased [Recovered/Resolved]
  - Anxiety [Unknown]
  - Joint swelling [Recovered/Resolved]
  - Weight increased [Unknown]
  - Cough [Not Recovered/Not Resolved]
  - Drug ineffective [Unknown]
  - Intentional drug misuse [Unknown]
